FAERS Safety Report 10177098 (Version 2)
Quarter: 2014Q2

REPORT INFORMATION
  Report Type: Spontaneous
  Country: BR (occurrence: BR)
  Receive Date: 20140516
  Receipt Date: 20140516
  Transmission Date: 20141212
  Serious: Yes (Other)
  Sender: FDA-Public Use
  Company Number: BR-MERCK-1311BRA005169

PATIENT
  Age: 59 Year
  Sex: Male
  Weight: 93 kg

DRUGS (3)
  1. PEG-INTRON [Suspect]
     Indication: HEPATITIS C
     Dosage: 100 MICROGRAM, QW
     Route: 058
     Dates: start: 20131108
  2. RIBAVIRIN (NON MERCK) [Concomitant]
     Indication: HEPATITIS C
     Dosage: 750 MG, QD
     Route: 048
     Dates: start: 20131108
  3. TELAPREVIR [Concomitant]
     Indication: HEPATITIS C
     Dosage: 730 MG, Q8H
     Route: 048
     Dates: start: 20131108

REACTIONS (3)
  - Hypersensitivity [Unknown]
  - Erythema [Recovering/Resolving]
  - Alopecia [Not Recovered/Not Resolved]
